FAERS Safety Report 4334962-8 (Version None)
Quarter: 2004Q2

REPORT INFORMATION
  Report Type: 
  Country: None (occurrence: None)
  Receive Date: 20040408
  Receipt Date: 20040330
  Transmission Date: 20050107
  Serious: Yes (Hospitalization)
  Sender: FDA-Public Use
  Company Number: FR-BRISTOL-MYERS SQUIBB COMPANY-12545364

PATIENT
  Age: 72 Year
  Sex: Female

DRUGS (2)
  1. AXEPIM INJ [Suspect]
     Indication: CANDIDIASIS
     Route: 042
     Dates: start: 20031015, end: 20031024
  2. VFEND [Suspect]
     Indication: CANDIDIASIS
     Route: 048
     Dates: start: 20031018, end: 20031023

REACTIONS (1)
  - HEPATITIS [None]
